FAERS Safety Report 5493836-X (Version None)
Quarter: 2007Q4

REPORT INFORMATION
  Report Type: 
  Country: None (occurrence: None)
  Receive Date: 20071023
  Receipt Date: 20071015
  Transmission Date: 20080405
  Serious: Yes (Life-Threatening, Hospitalization)
  Sender: FDA-Public Use
  Company Number: JP-ABBOTT-07P-087-0363803-00

PATIENT
  Sex: Male
  Weight: 66 kg

DRUGS (14)
  1. SEVOFLURANE [Suspect]
     Indication: GENERAL ANAESTHESIA
     Route: 055
     Dates: start: 20070314, end: 20070314
  2. NITROUS OXIDE [Suspect]
     Indication: DRUG USE FOR UNKNOWN INDICATION
  3. ETILEFRINE HYDROCHLORIDE [Suspect]
     Indication: DRUG USE FOR UNKNOWN INDICATION
  4. CEFTAZIDIME [Suspect]
     Indication: DRUG USE FOR UNKNOWN INDICATION
  5. THIAMYLAL SODIUM [Concomitant]
     Indication: INDUCTION OF ANAESTHESIA
     Route: 042
     Dates: start: 20070314, end: 20070314
  6. SUXAMETHONIUM CHLORIDE [Concomitant]
     Indication: MUSCLE RELAXANT THERAPY
     Route: 042
     Dates: start: 20070314, end: 20070314
  7. PANCURONIUM BROMIDE [Concomitant]
     Indication: MUSCLE RELAXANT THERAPY
     Route: 042
     Dates: start: 20070314, end: 20070314
  8. LIDOCAINE 1% [Concomitant]
     Indication: DRUG USE FOR UNKNOWN INDICATION
     Route: 042
     Dates: start: 20070314, end: 20070314
  9. 2 % LIDOCAINE [Concomitant]
     Indication: DRUG USE FOR UNKNOWN INDICATION
     Route: 042
     Dates: start: 20070314, end: 20070314
  10. ATROPINE SULFATE [Concomitant]
     Indication: PREMEDICATION
     Route: 042
     Dates: start: 20070314, end: 20070314
  11. ATROPINE SULFATE [Concomitant]
     Indication: ANAESTHESIA REVERSAL
     Route: 042
     Dates: start: 20070314, end: 20070314
  12. PETHIDINE HYDROCHLORIDE [Concomitant]
     Indication: PREMEDICATION
     Route: 042
     Dates: start: 20070314, end: 20070314
  13. ISEPAMICIN SULFATE [Concomitant]
     Indication: DRUG USE FOR UNKNOWN INDICATION
     Route: 065
     Dates: start: 20070314, end: 20070314
  14. NEOSTIGMINE METHYSULFATE [Concomitant]
     Indication: ANAESTHESIA REVERSAL
     Route: 042
     Dates: start: 20070314, end: 20070314

REACTIONS (2)
  - HAEMOLYTIC URAEMIC SYNDROME [None]
  - MULTI-ORGAN FAILURE [None]
